FAERS Safety Report 10363393 (Version 1)
Quarter: 2014Q3

REPORT INFORMATION
  Report Type: Spontaneous
  Country: US (occurrence: None)
  Receive Date: 20140804
  Receipt Date: 20140804
  Transmission Date: 20150326
  Serious: Yes (Hospitalization)
  Sender: FDA-Public Use
  Company Number: None

PATIENT
  Age: 53 Year
  Sex: Female
  Weight: 87.2 kg

DRUGS (1)
  1. CISPLATIN. [Suspect]
     Active Substance: CISPLATIN
     Dates: end: 20140728

REACTIONS (8)
  - Vomiting [None]
  - Pyrexia [None]
  - Nausea [None]
  - Fatigue [None]
  - Dyspnoea [None]
  - Rash [None]
  - Diarrhoea [None]
  - Hypokalaemia [None]

NARRATIVE: CASE EVENT DATE: 20140729
